FAERS Safety Report 18916935 (Version 1)
Quarter: 2021Q1

REPORT INFORMATION
  Report Type: Spontaneous
  Country: AU (occurrence: AU)
  Receive Date: 20210219
  Receipt Date: 20210219
  Transmission Date: 20210420
  Serious: Yes (Hospitalization, Other)
  Sender: FDA-Public Use
  Company Number: AU-GUERBET-AU-20210021

PATIENT
  Age: 49 Year
  Sex: Male
  Weight: 94 kg

DRUGS (1)
  1. DOTAREM [Suspect]
     Active Substance: GADOTERATE MEGLUMINE
     Indication: MAGNETIC RESONANCE IMAGING BRAIN
     Route: 065
     Dates: start: 20210209, end: 20210209

REACTIONS (6)
  - Nasal congestion [Recovered/Resolved]
  - Erythema [Recovered/Resolved]
  - Respiratory tract congestion [Recovered/Resolved]
  - Lacrimation increased [Recovered/Resolved]
  - Dyspnoea [Recovered/Resolved]
  - Cough [Recovered/Resolved]

NARRATIVE: CASE EVENT DATE: 20210209
